FAERS Safety Report 23526850 (Version 2)
Quarter: 2024Q1

REPORT INFORMATION
  Report Type: Spontaneous
  Country: AR (occurrence: AR)
  Receive Date: 20240215
  Receipt Date: 20240320
  Transmission Date: 20240410
  Serious: No
  Sender: FDA-Public Use
  Company Number: AR-PFIZER INC-PV202400012830

PATIENT
  Age: 6 Year
  Sex: Male

DRUGS (1)
  1. GENOTROPIN [Suspect]
     Active Substance: SOMATROPIN
     Indication: Short stature
     Dosage: 0.6 TO 1 MG, 7 TIMES PER WEEK
     Dates: start: 20231002

REACTIONS (3)
  - Device use error [Not Recovered/Not Resolved]
  - Device issue [Not Recovered/Not Resolved]
  - Device breakage [Not Recovered/Not Resolved]
